FAERS Safety Report 24659032 (Version 1)
Quarter: 2024Q4

REPORT INFORMATION
  Report Type: Spontaneous
  Country: DE (occurrence: DE)
  Receive Date: 20241125
  Receipt Date: 20241125
  Transmission Date: 20250115
  Serious: No
  Sender: SANDOZ
  Company Number: DE-SANDOZ-SDZ2024DE097383

PATIENT
  Sex: Male

DRUGS (1)
  1. ALBUTEROL SULFATE [Suspect]
     Active Substance: ALBUTEROL SULFATE
     Indication: Product used for unknown indication
     Dosage: AEROSOL (200) PUFFS, USA
     Route: 055

REACTIONS (2)
  - Therapeutic product effect decreased [Unknown]
  - Device mechanical issue [Unknown]
